FAERS Safety Report 16591484 (Version 3)
Quarter: 2019Q3

REPORT INFORMATION
  Report Type: Spontaneous
  Country: US (occurrence: US)
  Receive Date: 20190718
  Receipt Date: 20190830
  Transmission Date: 20191004
  Serious: Yes (Other)
  Sender: FDA-Public Use
  Company Number: US-PFIZER INC-2019305656

PATIENT
  Age: 68 Year
  Sex: Female
  Weight: 136.5 kg

DRUGS (1)
  1. LYRICA [Suspect]
     Active Substance: PREGABALIN
     Indication: NEURALGIA
     Dosage: 75 MG, 3X/DAY
     Dates: start: 2013

REACTIONS (4)
  - Malaise [Recovered/Resolved]
  - Musculoskeletal discomfort [Recovered/Resolved]
  - Drug dependence [Unknown]
  - Feeling abnormal [Recovered/Resolved]
